FAERS Safety Report 9996244 (Version 1)
Quarter: 2014Q1

REPORT INFORMATION
  Report Type: Spontaneous
  Country: DK (occurrence: GB)
  Receive Date: 20140311
  Receipt Date: 20140311
  Transmission Date: 20141002
  Serious: Yes (Other)
  Sender: FDA-Public Use
  Company Number: GB-FRI-1000060415

PATIENT
  Age: 31 Year
  Sex: Female

DRUGS (4)
  1. CITALOPRAM [Suspect]
     Indication: DEPRESSION
     Dosage: 10 MG DAILY
     Route: 048
  2. CITALOPRAM [Suspect]
     Dosage: 10 MG
     Route: 048
  3. LEVOTHYROXINE [Concomitant]
     Indication: HYPOTHYROIDISM
  4. LIOTHYRONINE SODIUM [Concomitant]

REACTIONS (4)
  - Suicidal ideation [Recovered/Resolved]
  - Sleep disorder [Not Recovered/Not Resolved]
  - Abnormal behaviour [Recovered/Resolved]
  - Depression [Not Recovered/Not Resolved]
